FAERS Safety Report 20446797 (Version 2)
Quarter: 2022Q2

REPORT INFORMATION
  Report Type: Spontaneous
  Country: US (occurrence: US)
  Receive Date: 20220208
  Receipt Date: 20220411
  Transmission Date: 20220721
  Serious: Yes (Hospitalization)
  Sender: FDA-Public Use
  Company Number: US-BIOVITRUM-2022US01660

PATIENT
  Sex: Male

DRUGS (3)
  1. SYNAGIS [Suspect]
     Active Substance: PALIVIZUMAB
     Indication: Premature baby
     Route: 030
     Dates: start: 20211014
  2. SYNAGIS [Suspect]
     Active Substance: PALIVIZUMAB
     Indication: Cystic fibrosis
  3. TOBRAMYCIN [Concomitant]
     Active Substance: TOBRAMYCIN

REACTIONS (7)
  - Gastrooesophageal reflux disease [Unknown]
  - Dyspnoea [Unknown]
  - Umbilical hernia [Recovered/Resolved]
  - Respiratory tract infection [Recovered/Resolved]
  - Cough [Unknown]
  - Secretion discharge [Unknown]
  - Product dose omission issue [Unknown]
